FAERS Safety Report 5950924-9 (Version None)
Quarter: 2008Q4

REPORT INFORMATION
  Report Type: 
  Country: None (occurrence: None)
  Receive Date: 20081112
  Receipt Date: 20081031
  Transmission Date: 20090506
  Serious: Yes (Other)
  Sender: FDA-Public Use
  Company Number: US-PFIZER INC-2008092487

PATIENT
  Sex: Male
  Weight: 86.2 kg

DRUGS (6)
  1. LYRICA [Suspect]
     Indication: NEUROPATHY PERIPHERAL
     Route: 048
     Dates: start: 20080401
  2. GABAPENTIN [Interacting]
     Indication: NEUROPATHY PERIPHERAL
     Route: 048
     Dates: start: 20071201, end: 20080301
  3. KEPPRA [Interacting]
     Indication: CONVULSION
     Route: 048
     Dates: start: 20080301, end: 20080301
  4. TOPAMAX [Interacting]
     Indication: MIGRAINE
     Dosage: TEXT:EVERYDAY
     Route: 048
     Dates: start: 20070901
  5. PLAVIX [Concomitant]
  6. ALL OTHER THERAPEUTIC PRODUCTS [Concomitant]
     Indication: MIGRAINE

REACTIONS (16)
  - ACTIVITIES OF DAILY LIVING IMPAIRED [None]
  - AMNESIA [None]
  - APHASIA [None]
  - ASTHMA [None]
  - CONFUSIONAL STATE [None]
  - CONVULSION [None]
  - COUGH [None]
  - DEPRESSION [None]
  - DISTURBANCE IN ATTENTION [None]
  - DRUG DEPENDENCE [None]
  - DRUG INTERACTION [None]
  - DRY MOUTH [None]
  - FRUSTRATION [None]
  - OVERDOSE [None]
  - SOMNOLENCE [None]
  - WHEEZING [None]
